FAERS Safety Report 6077618-6 (Version None)
Quarter: 2009Q1

REPORT INFORMATION
  Report Type: 
  Country: None (occurrence: None)
  Receive Date: 20090213
  Receipt Date: 20090204
  Transmission Date: 20090719
  Serious: Yes (Hospitalization)
  Sender: FDA-Public Use
  Company Number: GB-AMGEN-US134413

PATIENT
  Sex: Female
  Weight: 81 kg

DRUGS (13)
  1. ENBREL [Suspect]
     Indication: RHEUMATOID ARTHRITIS
     Route: 058
     Dates: start: 20040715, end: 20040915
  2. NABUMETONE [Concomitant]
     Indication: RHEUMATOID ARTHRITIS
     Route: 048
  3. ACETYLSALICYLIC ACID SRT [Concomitant]
     Indication: MYOCARDIAL ISCHAEMIA
     Dosage: 75MG, FREQUENCY UNKNOWN
     Route: 048
  4. ATENOLOL [Concomitant]
     Dosage: UNKNOWN
     Route: 065
  5. FOLIC ACID [Concomitant]
     Dosage: UNKNOWN
     Route: 065
  6. ISOSORBIDE MONONITRATE [Concomitant]
     Indication: CARDIAC FAILURE CONGESTIVE
     Dosage: UNKNOWN
     Route: 065
  7. ISOSORBIDE MONONITRATE [Concomitant]
     Route: 048
  8. METHOTREXATE [Concomitant]
     Indication: RHEUMATOID ARTHRITIS
     Route: 048
     Dates: start: 20020101, end: 20040902
  9. PARACETAMOL [Concomitant]
     Dosage: UNKNOWN
     Route: 065
  10. SIMVASTATIN [Concomitant]
     Indication: BLOOD CHOLESTEROL INCREASED
     Dosage: 40MG,FREQUENCY NOT STATED
     Route: 048
  11. NEFOPAM [Concomitant]
     Dosage: UNKNOWN
     Route: 065
  12. RAMIPRIL [Concomitant]
     Indication: BLOOD PRESSURE INCREASED
     Dosage: 5MG, FREQUENCY UNKNOWN
     Route: 048
  13. LANSOPRAZOLE [Concomitant]
     Indication: PEPTIC ULCER
     Dosage: 30MG, FREQUENCY NOT STATED
     Route: 048

REACTIONS (3)
  - PNEUMONIA [None]
  - SERRATIA INFECTION [None]
  - UNEVALUABLE EVENT [None]
